FAERS Safety Report 13765219 (Version 2)
Quarter: 2017Q3

REPORT INFORMATION
  Report Type: Spontaneous
  Country: US (occurrence: US)
  Receive Date: 20170718
  Receipt Date: 20170727
  Transmission Date: 20171127
  Serious: Yes (Hospitalization)
  Sender: FDA-Public Use
  Company Number: US-ALEXION PHARMACEUTICALS INC-A201707916

PATIENT
  Age: 7 Month
  Sex: Female

DRUGS (1)
  1. SOLIRIS [Suspect]
     Active Substance: ECULIZUMAB
     Indication: HAEMOLYTIC URAEMIC SYNDROME
     Dosage: UNK
     Route: 042
     Dates: start: 20170702

REACTIONS (4)
  - Platelet count increased [Unknown]
  - Hypersensitivity [Unknown]
  - Swollen tongue [Unknown]
  - Swelling [Unknown]

NARRATIVE: CASE EVENT DATE: 20170705
